FAERS Safety Report 7146594-7 (Version None)
Quarter: 2010Q4

REPORT INFORMATION
  Report Type: 
  Country: None (occurrence: None)
  Receive Date: 20101208
  Receipt Date: 20101110
  Transmission Date: 20110411
  Serious: No
  Sender: FDA-Public Use
  Company Number: US-PFIZER INC-2010149491

PATIENT
  Age: 30 Year
  Sex: Male

DRUGS (1)
  1. ADVIL PM [Suspect]
     Dosage: 1 DF, 2X/DAY
     Route: 048
     Dates: start: 20101101

REACTIONS (1)
  - DRUG INEFFECTIVE [None]
